FAERS Safety Report 6374166-0 (Version None)
Quarter: 2009Q3

REPORT INFORMATION
  Report Type: 
  Country: None (occurrence: None)
  Receive Date: 20090924
  Receipt Date: 20090617
  Transmission Date: 20100115
  Serious: No
  Sender: FDA-Public Use
  Company Number: US-ASTRAZENECA-2009UW16001

PATIENT
  Age: 35 Year

DRUGS (5)
  1. SEROQUEL XR [Suspect]
     Indication: BIPOLAR I DISORDER
     Route: 048
  2. WELLBUTRIN [Concomitant]
  3. XANAX [Concomitant]
  4. VYVANSE [Concomitant]
  5. RESTORIL [Concomitant]

REACTIONS (1)
  - ABNORMAL WEIGHT GAIN [None]
